FAERS Safety Report 13112816 (Version 1)
Quarter: 2017Q1

REPORT INFORMATION
  Report Type: Spontaneous
  Country: US (occurrence: US)
  Receive Date: 20170113
  Receipt Date: 20170113
  Transmission Date: 20170428
  Serious: Yes (Other)
  Sender: FDA-Public Use
  Company Number: US-ASTRAZENECA-2017SE01393

PATIENT
  Age: 24203 Day
  Sex: Female

DRUGS (31)
  1. KEPPRA [Concomitant]
     Active Substance: LEVETIRACETAM
  2. VITAMIN D3 [Concomitant]
     Active Substance: CHOLECALCIFEROL
     Dates: start: 20050115
  3. PRILOSEC [Suspect]
     Active Substance: OMEPRAZOLE MAGNESIUM
     Indication: GASTROOESOPHAGEAL REFLUX DISEASE
     Route: 048
     Dates: start: 20050115
  4. LYRICA [Concomitant]
     Active Substance: PREGABALIN
     Indication: NEURALGIA
     Route: 048
     Dates: start: 20060101
  5. PLAVIX [Concomitant]
     Active Substance: CLOPIDOGREL BISULFATE
     Indication: CARDIAC DISORDER
     Dates: start: 20130101
  6. FUROSEMIDE. [Concomitant]
     Active Substance: FUROSEMIDE
     Dates: start: 20050115
  7. RANEXA [Concomitant]
     Active Substance: RANOLAZINE
  8. ASPIRIN. [Concomitant]
     Active Substance: ASPIRIN
     Dates: start: 20050115
  9. FOLIC ACID. [Concomitant]
     Active Substance: FOLIC ACID
     Dates: start: 20050115
  10. ZOFRAN [Concomitant]
     Active Substance: ONDANSETRON HYDROCHLORIDE
     Indication: NAUSEA
     Dosage: 4.0MG EVERY 4 - 6 HOURS
     Dates: start: 20140115
  11. LYRICA [Concomitant]
     Active Substance: PREGABALIN
     Indication: PARAESTHESIA
     Route: 048
     Dates: start: 20060101
  12. LYRICA [Concomitant]
     Active Substance: PREGABALIN
     Indication: PARAESTHESIA
     Route: 048
     Dates: start: 20060101
  13. VITAMIN B12 [Concomitant]
     Active Substance: CYANOCOBALAMIN
     Route: 048
     Dates: start: 20050115
  14. ADVAIR DISKUS [Concomitant]
     Active Substance: FLUTICASONE PROPIONATE\SALMETEROL XINAFOATE
     Dosage: 250-50 MCG/DOSE  TWO TIMES A DAY
  15. NORCO [Concomitant]
     Active Substance: ACETAMINOPHEN\HYDROCODONE BITARTRATE
     Dosage: 1 TABLET EVERY 12-24 HOURS AS REQUIRED
  16. LIPITOR [Concomitant]
     Active Substance: ATORVASTATIN CALCIUM
     Dates: start: 20050115
  17. PROAIR HFA [Concomitant]
     Active Substance: ALBUTEROL SULFATE
  18. COZAAR [Concomitant]
     Active Substance: LOSARTAN POTASSIUM
  19. COREG [Concomitant]
     Active Substance: CARVEDILOL
     Indication: CARDIAC DISORDER
     Dates: start: 20050115
  20. LASIX [Concomitant]
     Active Substance: FUROSEMIDE
     Dates: start: 20150115
  21. LEVEMIR [Concomitant]
     Active Substance: INSULIN DETEMIR
     Dosage: 100 UNIT/ML. (3 ML) 40 UNITS, EVERY NIGHT AT BEDTIME
  22. LISINOPRIL. [Suspect]
     Active Substance: LISINOPRIL
     Route: 048
  23. DILANTIN [Concomitant]
     Active Substance: PHENYTOIN
  24. ZOLOFT [Concomitant]
     Active Substance: SERTRALINE HYDROCHLORIDE
     Dates: start: 20050115
  25. LYRICA [Concomitant]
     Active Substance: PREGABALIN
     Indication: NEURALGIA
     Route: 048
     Dates: start: 20060101
  26. LAMICTAL [Concomitant]
     Active Substance: LAMOTRIGINE
  27. LORATADINE. [Concomitant]
     Active Substance: LORATADINE
  28. PHOSLO [Concomitant]
     Active Substance: CALCIUM ACETATE
     Dates: start: 20150115
  29. IMDUR [Concomitant]
     Active Substance: ISOSORBIDE MONONITRATE
     Indication: DIALYSIS
     Dates: start: 20150101
  30. AMLODIPINE [Concomitant]
     Active Substance: AMLODIPINE BESYLATE
  31. REGLAN [Concomitant]
     Active Substance: METOCLOPRAMIDE HYDROCHLORIDE

REACTIONS (6)
  - Constipation [Unknown]
  - Diabetes mellitus [Unknown]
  - Chronic kidney disease [Not Recovered/Not Resolved]
  - Gastrooesophageal reflux disease [Unknown]
  - Hypersensitivity [Unknown]
  - Cerebrovascular accident [Unknown]

NARRATIVE: CASE EVENT DATE: 20150115
